FAERS Safety Report 15734330 (Version 1)
Quarter: 2018Q4

REPORT INFORMATION
  Report Type: Spontaneous
  Country: US (occurrence: US)
  Receive Date: 20181218
  Receipt Date: 20181218
  Transmission Date: 20190205
  Serious: No
  Sender: FDA-Public Use
  Company Number: US-PFIZER INC-2018513007

PATIENT
  Age: 9 Year
  Sex: Male

DRUGS (2)
  1. GENOTROPIN [Suspect]
     Active Substance: SOMATROPIN
     Dosage: ALTERNATING 1.1MG AND 1MG, DAILY
     Dates: start: 20180818
  2. GENOTROPIN [Suspect]
     Active Substance: SOMATROPIN
     Dosage: 1.15 MG, DAILY
     Dates: start: 20180818

REACTIONS (4)
  - Arthralgia [Unknown]
  - Product prescribing error [Unknown]
  - Abdominal pain [Unknown]
  - Pain in extremity [Unknown]
